FAERS Safety Report 10269387 (Version 2)
Quarter: 2014Q4

REPORT INFORMATION
  Report Type: Spontaneous
  Country: US (occurrence: US)
  Receive Date: 20140701
  Receipt Date: 20141107
  Transmission Date: 20150528
  Serious: Yes (Hospitalization, Other)
  Sender: FDA-Public Use
  Company Number: US-DRREDDYS-USA/USA/14/0041354

PATIENT
  Age: 16 Year
  Sex: Male

DRUGS (15)
  1. TOPIRAMATE. [Suspect]
     Active Substance: TOPIRAMATE
     Indication: AGGRESSION
     Route: 065
  2. PHENYTOIN. [Suspect]
     Active Substance: PHENYTOIN
     Indication: AGGRESSION
     Route: 065
  3. RILUZOLE. [Suspect]
     Active Substance: RILUZOLE
     Indication: AGGRESSION
     Route: 065
  4. LAMOTRIGINE TABLETS [Suspect]
     Active Substance: LAMOTRIGINE
     Indication: AGGRESSION
     Route: 065
  5. CARBAMAZEPINE. [Suspect]
     Active Substance: CARBAMAZEPINE
     Indication: AGGRESSION
     Route: 065
  6. VALPROIC ACID. [Suspect]
     Active Substance: VALPROIC ACID
     Indication: AGGRESSION
     Route: 065
  7. OXCARBAZEPINE. [Suspect]
     Active Substance: OXCARBAZEPINE
     Indication: AGGRESSION
     Route: 065
  8. GUANFACINE HYDROCHLORIDE. [Suspect]
     Active Substance: GUANFACINE HYDROCHLORIDE
     Indication: AGGRESSION
     Route: 065
  9. MEMANTINE [Suspect]
     Active Substance: MEMANTINE
     Indication: AGGRESSION
     Route: 065
  10. LORAZEPAM. [Suspect]
     Active Substance: LORAZEPAM
     Indication: AGGRESSION
     Route: 065
  11. SERTRALINE HYDROCHLORIDE. [Suspect]
     Active Substance: SERTRALINE HYDROCHLORIDE
     Indication: AGGRESSION
     Route: 065
  12. ZIPRASIDONE [Suspect]
     Active Substance: ZIPRASIDONE
     Indication: AGGRESSION
     Route: 065
  13. ZONISAMIDE. [Suspect]
     Active Substance: ZONISAMIDE
     Indication: AGGRESSION
     Route: 065
  14. RISPERIDONE. [Suspect]
     Active Substance: RISPERIDONE
     Indication: AGGRESSION
     Route: 065
  15. LITHIUM [Suspect]
     Active Substance: LITHIUM CARBONATE
     Indication: AGGRESSION
     Route: 065

REACTIONS (3)
  - Product quality issue [Unknown]
  - Aggression [Recovered/Resolved]
  - Drug ineffective [Unknown]
